FAERS Safety Report 6239719-9 (Version None)
Quarter: 2009Q2

REPORT INFORMATION
  Report Type: 
  Country: None (occurrence: None)
  Receive Date: 20090619
  Receipt Date: 20090603
  Transmission Date: 20091009
  Serious: Yes (Death, Life-Threatening, Other)
  Sender: FDA-Public Use
  Company Number: JP-2009-1158

PATIENT
  Age: 70 Year
  Sex: Female

DRUGS (2)
  1. NAVELBINE [Suspect]
     Indication: BREAST CANCER RECURRENT
     Dosage: 35 MG IV
     Route: 042
     Dates: start: 20090120, end: 20090413
  2. HERCEPTIN [Suspect]
     Indication: BREAST CANCER RECURRENT
     Dosage: 100 MG IV
     Route: 042
     Dates: start: 20090119, end: 20090413

REACTIONS (17)
  - BLOOD PRESSURE IMMEASURABLE [None]
  - BLOOD PRESSURE SYSTOLIC INCREASED [None]
  - BRAIN HERNIATION [None]
  - CANDIDIASIS [None]
  - CEREBRAL HAEMORRHAGE [None]
  - DEPRESSED LEVEL OF CONSCIOUSNESS [None]
  - DIABETES INSIPIDUS [None]
  - INTERSTITIAL LUNG DISEASE [None]
  - LYMPHANGIOSIS CARCINOMATOSA [None]
  - MYDRIASIS [None]
  - NEISSERIA INFECTION [None]
  - PNEUMONIA BACTERIAL [None]
  - POST PROCEDURAL HAEMORRHAGE [None]
  - PULMONARY EMBOLISM [None]
  - SPUTUM CULTURE POSITIVE [None]
  - STREPTOCOCCAL INFECTION [None]
  - TACHYPNOEA [None]
